FAERS Safety Report 9204958 (Version 1)
Quarter: 2013Q2

REPORT INFORMATION
  Report Type: Spontaneous
  Country: US (occurrence: US)
  Receive Date: 20130402
  Receipt Date: 20130402
  Transmission Date: 20140414
  Serious: No
  Sender: FDA-Public Use
  Company Number: US-ASTRAZENECA-2013SE18651

PATIENT
  Sex: Female

DRUGS (4)
  1. PRILOSEC [Suspect]
     Indication: GASTROOESOPHAGEAL REFLUX DISEASE
     Route: 048
     Dates: start: 200710
  2. PRILOSEC [Suspect]
     Indication: GASTROOESOPHAGEAL REFLUX DISEASE
     Dosage: 20 MG DAILY, OMEPRAZOLE
     Route: 048
     Dates: end: 201302
  3. LISINOPRIL [Concomitant]
     Indication: BLOOD PRESSURE MANAGEMENT
     Route: 048
  4. SYNTHROID [Concomitant]
     Indication: HYPOTHYROIDISM
     Route: 048

REACTIONS (8)
  - Abdominal distension [Unknown]
  - Chest pain [Unknown]
  - Throat irritation [Unknown]
  - Gastrooesophageal reflux disease [Unknown]
  - Blood pressure increased [Unknown]
  - Irritable bowel syndrome [Unknown]
  - Diarrhoea [Unknown]
  - Off label use [Unknown]
